FAERS Safety Report 16525423 (Version 1)
Quarter: 2019Q3

REPORT INFORMATION
  Report Type: Spontaneous
  Country: US (occurrence: US)
  Receive Date: 20190702
  Receipt Date: 20190702
  Transmission Date: 20191004
  Serious: Yes (Hospitalization)
  Sender: FDA-Public Use
  Company Number: US-BAXTER-2019BAX012817

PATIENT
  Age: 70 Year

DRUGS (1)
  1. VANCOMYCIN INJECTION, USP [Suspect]
     Active Substance: VANCOMYCIN
     Indication: CLOSTRIDIUM DIFFICILE INFECTION
     Route: 065

REACTIONS (1)
  - Clostridium difficile infection [Unknown]
